FAERS Safety Report 4854552-8 (Version None)
Quarter: 2005Q4

REPORT INFORMATION
  Report Type: 
  Country: None (occurrence: None)
  Receive Date: 20051215
  Receipt Date: 20051205
  Transmission Date: 20060501
  Serious: Yes (Hospitalization)
  Sender: FDA-Public Use
  Company Number: BE-ROCHE-427262

PATIENT
  Age: 38 Year
  Sex: Male

DRUGS (6)
  1. FUZEON [Suspect]
     Route: 058
     Dates: start: 20010326
  2. DIDANOSINE [Concomitant]
  3. TENOFOVIR [Concomitant]
  4. SAQUINAVIR [Concomitant]
  5. RITONAVIR [Concomitant]
  6. FOSAMPRENAVIR [Concomitant]

REACTIONS (1)
  - NEPHROLITHIASIS [None]
